FAERS Safety Report 6895233 (Version 5)
Quarter: 2012Q4

REPORT INFORMATION
  Report Type: 
  Country: US (occurrence: US)
  Receive Date: 20090129
  Receipt Date: 20121213
  Transmission Date: 20130627
  Serious: Yes (Death, Other)
  Sender: FDA-Public Use
  Company Number: US-BAYER-200911465NA

PATIENT
  Age: 60 Year
  Sex: Male
  Weight: 81 kg

DRUGS (13)
  1. TRASYLOL [Suspect]
     Indication: CABG
     Dosage: 1 ml (initial), UNK
     Route: 042
     Dates: start: 19990126, end: 19990126
  2. TRASYLOL [Suspect]
     Indication: LEFT VENTRICULAR ASSIST DEVICE INSERTION
     Dosage: 200 ml (loading), UNK
     Route: 042
     Dates: start: 19990126, end: 19990126
  3. TRASYLOL [Suspect]
     Indication: CABG
     Dosage: 50 ml/hr (infusion), UNK
     Route: 042
     Dates: start: 19990126, end: 19990126
  4. LISINOPRIL [Concomitant]
  5. HYDROCHLOROTHIAZIDE [Concomitant]
     Dosage: 25 mg, QD
  6. ATENOLOL [Concomitant]
     Dosage: 50 mg, QD
  7. HEPARIN [Concomitant]
  8. PANCURONIUM [Concomitant]
     Dosage: 8 UNK, UNK
     Route: 042
     Dates: start: 19990126, end: 19990126
  9. SUFENTA [Concomitant]
     Dosage: 200 mg, UNK
     Route: 042
     Dates: start: 19990126, end: 19990126
  10. NITROGLYCERIN [Concomitant]
     Dosage: 5 ml/hr, UNK
     Route: 042
     Dates: start: 19990126
  11. LEVOPHED [Concomitant]
     Dosage: 20 ml/hr, UNK
     Route: 042
     Dates: start: 19990126
  12. MIDAZOLAM [Concomitant]
     Dosage: 10 mg, UNK
     Route: 042
     Dates: start: 19990126, end: 19990126
  13. DOPAMINE [Concomitant]
     Dosage: 3 mg/kg/hr
     Route: 042
     Dates: start: 19990126

REACTIONS (15)
  - Death [Fatal]
  - Multi-organ failure [Unknown]
  - Renal failure [Unknown]
  - Renal impairment [Not Recovered/Not Resolved]
  - Renal injury [Unknown]
  - Emotional disorder [Unknown]
  - Stress [Unknown]
  - Anxiety [Unknown]
  - Unevaluable event [Unknown]
  - Fear [Unknown]
  - Pain [Unknown]
  - Unevaluable event [Unknown]
  - Anxiety [Unknown]
  - Anhedonia [Unknown]
  - Injury [Unknown]
